FAERS Safety Report 4398770-4 (Version None)
Quarter: 2004Q3

REPORT INFORMATION
  Report Type: 
  Country: None (occurrence: None)
  Receive Date: 20040712
  Receipt Date: 20040628
  Transmission Date: 20050211
  Serious: Yes (Death)
  Sender: FDA-Public Use
  Company Number: DSA_70273_2004

PATIENT
  Age: 46 Year
  Sex: Female
  Weight: 62.5964 kg

DRUGS (3)
  1. DARVON [Suspect]
  2. ALPRAZOLAM [Suspect]
  3. METHADONE HCL [Suspect]

REACTIONS (10)
  - ADRENAL DISORDER [None]
  - ANTHRAX [None]
  - BRAIN OEDEMA [None]
  - DRUG TOXICITY [None]
  - GALLBLADDER DISORDER [None]
  - GALLBLADDER OEDEMA [None]
  - PULMONARY OEDEMA [None]
  - TOXICOLOGIC TEST ABNORMAL [None]
  - UTERINE HAEMORRHAGE [None]
  - UTERINE POLYP [None]
